FAERS Safety Report 6242107-2 (Version None)
Quarter: 2009Q2

REPORT INFORMATION
  Report Type: 
  Country: None (occurrence: None)
  Receive Date: 20090624
  Receipt Date: 20090617
  Transmission Date: 20091009
  Serious: Yes (Other)
  Sender: FDA-Public Use
  Company Number: US-JNJCH-2009016849

PATIENT
  Age: 29 Year
  Sex: Male
  Weight: 85.3 kg

DRUGS (2)
  1. ROGAINE [Suspect]
     Indication: ALOPECIA
     Dosage: TEXT:UNSEPCIFIED
     Route: 061
     Dates: start: 20090501, end: 20090617
  2. ACIPHEX [Concomitant]
     Indication: GASTROOESOPHAGEAL REFLUX DISEASE
     Dosage: TEXT:UNSEPCIFIED
     Route: 065

REACTIONS (3)
  - DEPRESSION [None]
  - DISTURBANCE IN ATTENTION [None]
  - SLEEP DISORDER [None]
